FAERS Safety Report 21139912 (Version 2)
Quarter: 2022Q3

REPORT INFORMATION
  Report Type: Spontaneous
  Country: FR (occurrence: FR)
  Receive Date: 20220728
  Receipt Date: 20220805
  Transmission Date: 20221027
  Serious: Yes (Life-Threatening)
  Sender: FDA-Public Use
  Company Number: None

PATIENT
  Age: 63 Year
  Sex: Male
  Weight: 68 kg

DRUGS (16)
  1. CLOZAPINE [Interacting]
     Active Substance: CLOZAPINE
     Indication: Schizophrenia
     Dosage: UNIT DOSE : 200 MG , FREQUENCY TIME :1 DAY  , DURATION : 74 DAYS
     Dates: start: 20211230, end: 20220314
  2. MIANSERIN HYDROCHLORIDE [Interacting]
     Active Substance: MIANSERIN HYDROCHLORIDE
     Indication: Depression
     Dosage: MIANSERINE (CHLORHYDRATE DE) , UNIT DOSE : 30 MG , FREQUENCY TIME :1 DAY  , DURATION : 80 DAYS
     Dates: start: 20211224, end: 20220314
  3. ZOPICLONE [Interacting]
     Active Substance: ZOPICLONE
     Indication: Insomnia
     Dosage: UNIT DOSE :7.5 MG   , FREQUENCY TIME :1 DAY  , DURATION : 80 DAYS
     Dates: start: 20211224, end: 20220314
  4. LOXAPINE [Interacting]
     Active Substance: LOXAPINE
     Indication: Schizophrenia
     Dosage: FORM STRENGTH 25 MG ,  UNIT DOSE : 75 MG , FREQUENCY TIME :1 DAY  , DURATION : 56 DAYS
     Dates: start: 20211230, end: 20220224
  5. LOXAPINE [Interacting]
     Active Substance: LOXAPINE
     Dosage: FORM STRENGTH 25 MG ,UNIT DOSE :75 MG  , FREQUENCY TIME :1 DAY   , DURATION : 3 DAY
     Dates: start: 20220307, end: 20220310
  6. LOXAPINE [Interacting]
     Active Substance: LOXAPINE
     Dosage: FORM STRENGTH 25 MG , UNIT DOSE : 25 MG , FREQUENCY TIME :1 DAY  , DURATION : 4 DAY
     Dates: start: 20220310, end: 20220314
  7. LOXAPINE [Interacting]
     Active Substance: LOXAPINE
     Dosage: FORM STRENGTH 25 MG, UNIT DOSE :125 MG  , FREQUENCY TIME :1 DAY  , DURATION : 11 DAY
     Dates: start: 20220224, end: 20220307
  8. SCOPOLAMINE [Interacting]
     Active Substance: SCOPOLAMINE
     Indication: Salivary hypersecretion
     Dosage: 1 MG/72 HOURS, FORM STRENGTH : 1 MG, UNIT DOSE : 2 DF , FREQUENCY TIME : 72 HOURS , DURATION : 1 DAY
     Dates: start: 20220313, end: 20220314
  9. SCOPOLAMINE [Interacting]
     Active Substance: SCOPOLAMINE
     Dosage: 1 MG/72 HOURS, FORM STRENGTH : 1 MG, UNIT DOSE : 1 DF , FREQUENCY TIME : 72 HOURS , DURATION : 1 DAY
     Dates: start: 20220316, end: 20220321
  10. SCOPOLAMINE [Interacting]
     Active Substance: SCOPOLAMINE
     Dosage: 1 MG/72 HOURS, FORM STRENGTH : 1 MG, UNIT DOSE : 1 DF , FREQUENCY TIME :72 HOURS  , DURATION :  7 DA
     Dates: start: 20220304, end: 20220311
  11. VALPROATE SODIUM [Suspect]
     Active Substance: VALPROATE SODIUM
     Indication: Schizophrenia
     Dosage: FORM STRENGTH  : 500 MG, FILM-COATED, PROLONGED-RELEASE TABLET ,UNIT DOSE : 4 DF , FREQUENCY TIME :
     Dates: start: 20211224, end: 20220314
  12. TROPATEPINE HYDROCHLORIDE [Suspect]
     Active Substance: TROPATEPINE HYDROCHLORIDE
     Indication: Extrapyramidal disorder
     Dosage: FORM STRENGTH : 10MG , UNIT DOSE :20MG  , FREQUENCY TIME :1 DAY  , DURATION : 80 DAYS
     Dates: start: 20211224, end: 20220314
  13. VALIUM [Interacting]
     Active Substance: DIAZEPAM
     Indication: Schizophrenia
     Dosage: UNIT DOSE : 30 MG , FREQUENCY TIME : 1 DAYS , THERAPY END DATE : ASKU
     Dates: start: 20220223
  14. X PREP [Concomitant]
     Indication: Constipation
     Dosage: ORAL POWDER IN SACHET , UNIT DOSE : 2 DF  , FREQUENCY TIME :72 HOURS  , DURATION : 7 DAYS
     Dates: start: 20220306, end: 20220313
  15. X PREP [Concomitant]
     Dosage: ORAL POWDER IN SACHET ,UNIT DOSE : 2 DF , FREQUENCY TIME :72 HOURS  , DURATION : 3 DAYS
     Dates: start: 20220318, end: 20220321
  16. POLYETHYLENE GLYCOLS [Concomitant]
     Active Substance: POLYETHYLENE GLYCOLS
     Indication: Product used for unknown indication
     Dosage: MACROGOL (STEARATE DE)  UNIT DOSE : 4 DF , FREQUENCY TIME : 1 DAYS
     Dates: start: 20211224

REACTIONS (2)
  - Intestinal obstruction [Recovered/Resolved]
  - Drug interaction [Recovered/Resolved]

NARRATIVE: CASE EVENT DATE: 20220314
